FAERS Safety Report 16555792 (Version 1)
Quarter: 2019Q3

REPORT INFORMATION
  Report Type: Spontaneous
  Country: GB (occurrence: GB)
  Receive Date: 20190710
  Receipt Date: 20190710
  Transmission Date: 20191004
  Serious: Yes (Other)
  Sender: FDA-Public Use
  Company Number: GB-MYLANLABS-2019M1063612

PATIENT
  Age: 44 Year
  Sex: Male
  Weight: 111 kg

DRUGS (6)
  1. ARCOXIA [Concomitant]
     Active Substance: ETORICOXIB
     Dosage: 1 DOSAGE FORM, QD
     Dates: start: 20150209, end: 20181030
  2. NAPROXEN. [Suspect]
     Active Substance: NAPROXEN
     Indication: PAIN
     Dosage: 1000 MILLIGRAM, QD
     Dates: start: 20181204, end: 20190101
  3. ZOPICLONE [Concomitant]
     Active Substance: ZOPICLONE
     Dosage: AT NIGHT.
     Dates: start: 20181030, end: 20181113
  4. NAPROXEN. [Suspect]
     Active Substance: NAPROXEN
     Indication: JOINT INJURY
     Dosage: 500 MILLIGRAM
     Dates: start: 20190118
  5. COCODAMOL [Concomitant]
     Active Substance: ACETAMINOPHEN\CODEINE PHOSPHATE
     Dosage: TAKE TWO 4 TIMES PER DAY AS NEEDED.
     Dates: start: 20181204, end: 20181205
  6. LANSOPRAZOLE. [Concomitant]
     Active Substance: LANSOPRAZOLE
     Dosage: (TO PROTECT STOMACH FROM NAP...)
     Dates: start: 20181204, end: 20190101

REACTIONS (2)
  - Depressed mood [Recovered/Resolved]
  - Anger [Recovered/Resolved]

NARRATIVE: CASE EVENT DATE: 20190118
